FAERS Safety Report 7080883-X (Version None)
Quarter: 2010Q4

REPORT INFORMATION
  Report Type: 
  Country: None (occurrence: None)
  Receive Date: 20101103
  Receipt Date: 20101028
  Transmission Date: 20110411
  Serious: Yes (Death)
  Sender: FDA-Public Use
  Company Number: US-GILEAD-2010-0032684

PATIENT
  Sex: Male

DRUGS (13)
  1. LETAIRIS [Suspect]
     Indication: PULMONARY ARTERIAL HYPERTENSION
     Route: 048
     Dates: start: 20100910
  2. PLAVIX [Concomitant]
  3. FUROSEMIDE [Concomitant]
  4. LIPITOR [Concomitant]
  5. ALBUTEROL [Concomitant]
  6. OMEPRAZOLE [Concomitant]
  7. TAMSULOSIN [Concomitant]
  8. TRAZODONE [Concomitant]
  9. ZOLPIDEM [Concomitant]
  10. DETROL [Concomitant]
  11. XALATAN [Concomitant]
  12. MULTI-VITAMINS [Concomitant]
  13. ARICEPT [Concomitant]

REACTIONS (1)
  - DEATH [None]
